FAERS Safety Report 24565210 (Version 2)
Quarter: 2024Q4

REPORT INFORMATION
  Report Type: Report from Study
  Country: FR (occurrence: FR)
  Receive Date: 20241030
  Receipt Date: 20241114
  Transmission Date: 20250114
  Serious: Yes (Other)
  Sender: CELLTRION
  Company Number: FR-CELLTRION INC.-2023FR015600

PATIENT

DRUGS (25)
  1. INFLIXIMAB-DYYB [Suspect]
     Active Substance: INFLIXIMAB-DYYB
     Indication: Ankylosing spondylitis
     Dosage: 400 MG ONCE PER 6 WEEKS
     Route: 042
     Dates: start: 20230331
  2. INFLIXIMAB-DYYB [Suspect]
     Active Substance: INFLIXIMAB-DYYB
     Dosage: 400 MG ONCE PER 6 WEEKS
     Route: 042
     Dates: start: 20230512
  3. INFLIXIMAB-DYYB [Suspect]
     Active Substance: INFLIXIMAB-DYYB
     Dosage: 400 MG ONCE PER 6 WEEKS
     Route: 042
     Dates: start: 20230804
  4. INFLIXIMAB-DYYB [Suspect]
     Active Substance: INFLIXIMAB-DYYB
     Dosage: 400 MILLIGRAM ONCE EVERY 6 WEEKS
     Route: 042
     Dates: start: 202107
  5. INFLIXIMAB-DYYB [Suspect]
     Active Substance: INFLIXIMAB-DYYB
     Dosage: 400 MILLIGRAM ONCE EVERY 6 WEEKS
     Route: 042
     Dates: start: 202108
  6. INFLIXIMAB-DYYB [Suspect]
     Active Substance: INFLIXIMAB-DYYB
     Dosage: 500 MILLIGRAM ONCE PER 6 WEEKS
     Route: 042
     Dates: start: 202401
  7. INFLIXIMAB-DYYB [Suspect]
     Active Substance: INFLIXIMAB-DYYB
     Dosage: 400 MILLIGRAM, ONCE PER 6 WEEKS
     Route: 042
     Dates: start: 20231208, end: 20231208
  8. INFLIXIMAB-DYYB [Suspect]
     Active Substance: INFLIXIMAB-DYYB
     Dosage: 400 MG, SINGLE (STUDY DRUG ADMINISTRATION DATE: 0023-12-08)
     Route: 042
  9. INFLIXIMAB-DYYB [Suspect]
     Active Substance: INFLIXIMAB-DYYB
     Dosage: 400 MILLIGRAM, SINGLE
     Route: 042
     Dates: start: 20230331, end: 20230331
  10. INFLIXIMAB-DYYB [Suspect]
     Active Substance: INFLIXIMAB-DYYB
     Dosage: 400 MILLIGRAM, SINGLE
     Route: 042
     Dates: start: 20230512, end: 20230512
  11. INFLIXIMAB-DYYB [Suspect]
     Active Substance: INFLIXIMAB-DYYB
     Dosage: 400 MILLIGRAM, SINGLE
     Route: 042
     Dates: start: 20230804, end: 20230804
  12. INFLIXIMAB-DYYB [Suspect]
     Active Substance: INFLIXIMAB-DYYB
     Dosage: 400 MILLIGRAM, SINGLE
     Route: 042
     Dates: start: 20230915, end: 20230915
  13. INFLIXIMAB-DYYB [Suspect]
     Active Substance: INFLIXIMAB-DYYB
     Dosage: 400 MILLIGRAM, SINGLE
     Route: 042
     Dates: start: 20231027, end: 20231027
  14. INFLIXIMAB-DYYB [Suspect]
     Active Substance: INFLIXIMAB-DYYB
     Dosage: 500 MILLIGRAM, SINGLE
     Route: 042
     Dates: start: 20240119, end: 20240119
  15. INFLIXIMAB-DYYB [Suspect]
     Active Substance: INFLIXIMAB-DYYB
     Dosage: 500 MILLIGRAM, SINGLE
     Route: 042
     Dates: start: 20240301, end: 20240301
  16. INFLIXIMAB-DYYB [Suspect]
     Active Substance: INFLIXIMAB-DYYB
     Dosage: 500 MILLIGRAM, SINGLE
     Route: 042
     Dates: start: 20240412, end: 20240412
  17. INFLIXIMAB-DYYB [Suspect]
     Active Substance: INFLIXIMAB-DYYB
     Dosage: 500 MILLIGRAM, SINGLE
     Route: 042
     Dates: start: 20240524, end: 20240524
  18. INFLIXIMAB-DYYB [Suspect]
     Active Substance: INFLIXIMAB-DYYB
     Dosage: 500 MILLIGRAM, SINGLE
     Route: 042
     Dates: start: 20240708, end: 20240708
  19. INFLIXIMAB-DYYB [Suspect]
     Active Substance: INFLIXIMAB-DYYB
     Dosage: 500 MILLIGRAM, SINGLE
     Route: 042
     Dates: start: 20241004, end: 20241004
  20. INFLIXIMAB-DYYB [Suspect]
     Active Substance: INFLIXIMAB-DYYB
     Dosage: 500 MILLIGRAM, SINGLE
     Route: 042
     Dates: start: 20240823, end: 20240823
  21. DICLOFENAC SODIUM [Concomitant]
     Active Substance: DICLOFENAC SODIUM
     Indication: Ankylosing spondylitis
     Dosage: 50 MG, AS PER NEED
     Route: 048
  22. PREDNISOLONE [Concomitant]
     Active Substance: PREDNISOLONE
     Indication: Laryngitis
     Dosage: 60 MG, QD
     Route: 048
     Dates: start: 20230324, end: 20240326
  23. TRAMADOL [Concomitant]
     Active Substance: TRAMADOL
     Indication: Ankylosing spondylitis
     Dosage: UNK MG, 1/WEEK
     Route: 048
  24. TRAMADOL [Concomitant]
     Active Substance: TRAMADOL
     Dosage: 50 MILLIGRAM, AS PER NEEDED
     Dates: end: 20230804
  25. ACETAMINOPHEN\CODEINE PHOSPHATE [Concomitant]
     Active Substance: ACETAMINOPHEN\CODEINE PHOSPHATE
     Indication: Ankylosing spondylitis
     Dosage: 500 MILLIGRAM AS PER NEEDED
     Route: 048
     Dates: start: 20230804

REACTIONS (7)
  - Abortion spontaneous [Recovered/Resolved]
  - Abortion spontaneous [Recovered/Resolved]
  - Condition aggravated [Recovered/Resolved]
  - Tooth abscess [Recovered/Resolved]
  - Influenza [Recovered/Resolved]
  - Maternal exposure during pregnancy [Unknown]
  - Maternal exposure during pregnancy [Unknown]

NARRATIVE: CASE EVENT DATE: 20230401
